FAERS Safety Report 9830926 (Version 1)
Quarter: 2014Q1

REPORT INFORMATION
  Report Type: Spontaneous
  Country: NL (occurrence: NL)
  Receive Date: 20140120
  Receipt Date: 20140120
  Transmission Date: 20141002
  Serious: Yes (Other)
  Sender: FDA-Public Use
  Company Number: PHHY2014NL004728

PATIENT
  Sex: Female

DRUGS (1)
  1. GILENYA [Suspect]

REACTIONS (1)
  - Skin cancer [Unknown]
